FAERS Safety Report 9104110 (Version 3)
Quarter: 2013Q1

REPORT INFORMATION
  Report Type: Report from Study
  Country: FR (occurrence: FR)
  Receive Date: 20130219
  Receipt Date: 20130304
  Transmission Date: 20140127
  Serious: Yes (Death, Hospitalization)
  Sender: FDA-Public Use
  Company Number: FR-PFIZER INC-2013060068

PATIENT
  Age: 64 Year
  Sex: Female
  Weight: 61 kg

DRUGS (5)
  1. ATGAM [Suspect]
     Indication: BONE MARROW FAILURE
     Dosage: 2600 MG PER DAY
     Dates: start: 20120904, end: 20120907
  2. CICLOSPORIN [Concomitant]
     Indication: BONE MARROW FAILURE
     Dosage: UNK
     Dates: start: 20120907
  3. POLARAMINE [Concomitant]
     Indication: PREMEDICATION
  4. DAFALGAN [Concomitant]
     Indication: PREMEDICATION
  5. CORTISONE [Concomitant]
     Indication: PREMEDICATION

REACTIONS (6)
  - Sepsis [Fatal]
  - Cerebral haemorrhage [Fatal]
  - Uterine haemorrhage [Fatal]
  - Drug ineffective [Fatal]
  - Serum sickness [Recovered/Resolved]
  - Cholestasis [Recovering/Resolving]
